FAERS Safety Report 24031757 (Version 1)
Quarter: 2024Q2

REPORT INFORMATION
  Report Type: Spontaneous
  Country: DE (occurrence: DE)
  Receive Date: 20240629
  Receipt Date: 20240629
  Transmission Date: 20240716
  Serious: Yes (Death)
  Sender: FDA-Public Use
  Company Number: None

PATIENT
  Age: 82 Year
  Sex: Female
  Weight: 65 kg

DRUGS (1)
  1. TRASTUZUMAB [Suspect]
     Active Substance: TRASTUZUMAB
     Indication: Breast cancer
     Dosage: 8 MG/KG 512 MG ABS., DISCONTINUE AFTER APPROX. 2/3 OF THE DOSE
     Dates: start: 20240507, end: 20240507

REACTIONS (4)
  - Tremor [Fatal]
  - Cardio-respiratory arrest [Fatal]
  - Restlessness [Fatal]
  - Hypersensitivity [Fatal]

NARRATIVE: CASE EVENT DATE: 20240507
